FAERS Safety Report 13439490 (Version 1)
Quarter: 2017Q2

REPORT INFORMATION
  Report Type: Report from Study
  Country: US (occurrence: US)
  Receive Date: 20170413
  Receipt Date: 20170413
  Transmission Date: 20170830
  Serious: Yes (Other)
  Sender: FDA-Public Use
  Company Number: US-AMGEN-USASL2017054528

PATIENT
  Age: 68 Year
  Sex: Male

DRUGS (2)
  1. ENBREL [Suspect]
     Active Substance: ETANERCEPT
     Dosage: UNK
     Route: 065
  2. ENBREL [Suspect]
     Active Substance: ETANERCEPT
     Indication: PSORIASIS
     Dosage: UNK
     Route: 065

REACTIONS (8)
  - Cardiac ablation [Unknown]
  - Cataract [Unknown]
  - Hernia [Unknown]
  - Vascular graft [Unknown]
  - Meniscus operation [Unknown]
  - Corneal operation [Unknown]
  - Carotid endarterectomy [Unknown]
  - Colectomy [Unknown]
